FAERS Safety Report 10239691 (Version 1)
Quarter: 2014Q2

REPORT INFORMATION
  Report Type: Spontaneous
  Country: US (occurrence: None)
  Receive Date: 20140612
  Receipt Date: 20140612
  Transmission Date: 20141212
  Serious: Yes (Hospitalization)
  Sender: FDA-Public Use
  Company Number: SYM-2014-21509

PATIENT
  Sex: Male

DRUGS (2)
  1. RETIN-A [Suspect]
     Indication: ACNE
     Route: 061
  2. DOXYCYCLINE HYCLATE [Suspect]
     Indication: ACNE
     Route: 048

REACTIONS (1)
  - Pancreatitis acute [None]
